FAERS Safety Report 23933787 (Version 1)
Quarter: 2024Q2

REPORT INFORMATION
  Report Type: Spontaneous
  Country: CN (occurrence: CN)
  Receive Date: 20240603
  Receipt Date: 20240603
  Transmission Date: 20240716
  Serious: Yes (Hospitalization)
  Sender: FDA-Public Use
  Company Number: CN-PFIZER INC-PV202400072071

PATIENT
  Age: 39 Year
  Sex: Female
  Weight: 51 kg

DRUGS (3)
  1. METHOTREXATE SODIUM [Suspect]
     Active Substance: METHOTREXATE SODIUM
     Indication: Gestational trophoblastic tumour
     Dosage: 0.15 G, 1X/DAY
     Route: 042
     Dates: start: 20240424, end: 20240424
  2. ETOPOSIDE [Suspect]
     Active Substance: ETOPOSIDE
     Indication: Gestational trophoblastic tumour
     Dosage: 0.15 G, 1X/DAY
     Route: 041
     Dates: start: 20240424, end: 20240424
  3. DACTINOMYCIN [Suspect]
     Active Substance: DACTINOMYCIN
     Indication: Gestational trophoblastic tumour
     Dosage: 0.5 MG, 1X/DAY
     Route: 041
     Dates: start: 20240424, end: 20240424

REACTIONS (1)
  - Granulocyte count decreased [Recovering/Resolving]

NARRATIVE: CASE EVENT DATE: 20240516
